FAERS Safety Report 22774474 (Version 2)
Quarter: 2023Q4

REPORT INFORMATION
  Report Type: Report from Study
  Country: ES (occurrence: ES)
  Receive Date: 20230802
  Receipt Date: 20231221
  Transmission Date: 20240110
  Serious: Yes (Other)
  Sender: FDA-Public Use
  Company Number: ES-CELLTRION INC.-2023ES015032

PATIENT

DRUGS (12)
  1. BEVACIZUMAB [Suspect]
     Active Substance: BEVACIZUMAB
     Indication: Hepatocellular carcinoma
     Dosage: 930 MG
     Route: 065
     Dates: start: 20230208
  2. ATEZOLIZUMAB [Suspect]
     Active Substance: ATEZOLIZUMAB
     Indication: Hepatocellular carcinoma
     Dosage: 1200 MG EVERY 3 WEEKS, ON 25/MAY/2023, SHE RECEIVED MOST RECENT DOSE OF ATEZOLIZUMAB.
     Route: 042
     Dates: start: 20230208
  3. OMEPRAZOLE [Concomitant]
     Active Substance: OMEPRAZOLE
     Indication: Prophylaxis
     Dosage: UNK, QD
  4. CEFUROXIME [Concomitant]
     Active Substance: CEFUROXIME
     Dosage: 0.5 DAY
     Dates: start: 20230314
  5. LORMETAZEPAM [Concomitant]
     Active Substance: LORMETAZEPAM
     Indication: Prophylaxis
     Dosage: UNK, QD
     Dates: start: 20230208
  6. ACETAMINOPHEN [Concomitant]
     Active Substance: ACETAMINOPHEN
     Indication: Prophylaxis
     Dosage: UNK
     Dates: start: 20230131
  7. FUROSEMIDE [Concomitant]
     Active Substance: FUROSEMIDE
     Dosage: UNK, QD
     Dates: end: 20230803
  8. FENTANYL [Concomitant]
     Active Substance: FENTANYL\FENTANYL CITRATE
     Dosage: UNK, QD
     Dates: start: 20230301
  9. SIMVASTATIN [Concomitant]
     Active Substance: SIMVASTATIN
     Dosage: UNK, QD
  10. ATENOLOL [Concomitant]
     Active Substance: ATENOLOL
     Dosage: UNK, QD
  11. METAMIZOLE [Concomitant]
     Active Substance: METAMIZOLE
     Dosage: UNK
     Dates: start: 20230131
  12. HYDROCHLOROTHIAZIDE\VALSARTAN [Concomitant]
     Active Substance: HYDROCHLOROTHIAZIDE\VALSARTAN
     Dosage: UNK, QD

REACTIONS (3)
  - Hepatitis [Recovered/Resolved]
  - Nausea [Recovered/Resolved]
  - Intentional product use issue [Unknown]

NARRATIVE: CASE EVENT DATE: 20230615
